FAERS Safety Report 10101180 (Version 2)
Quarter: 2014Q2

REPORT INFORMATION
  Report Type: Spontaneous
  Country: FR (occurrence: FR)
  Receive Date: 20140424
  Receipt Date: 20140623
  Transmission Date: 20141212
  Serious: Yes (Death, Other)
  Sender: FDA-Public Use
  Company Number: FR-009507513-1404FRA007931

PATIENT
  Age: 63 Year
  Sex: Male

DRUGS (2)
  1. TEMODAL [Suspect]
     Dosage: UNK
     Dates: start: 20131217
  2. PREDNISONE [Concomitant]
     Route: 042

REACTIONS (4)
  - Death [Fatal]
  - Thrombosis [Not Recovered/Not Resolved]
  - Pulmonary embolism [Not Recovered/Not Resolved]
  - Incorrect drug administration duration [Unknown]
